FAERS Safety Report 5466788-6 (Version None)
Quarter: 2007Q3

REPORT INFORMATION
  Report Type: 
  Country: None (occurrence: None)
  Receive Date: 20070925
  Receipt Date: 20070914
  Transmission Date: 20080115
  Serious: Yes (Other)
  Sender: FDA-Public Use
  Company Number: JP-JNJFOC-20070903515

PATIENT
  Age: 82 Year
  Sex: Male

DRUGS (1)
  1. POLLAKISU [Suspect]
     Indication: HYPERTONIC BLADDER
     Route: 065

REACTIONS (2)
  - ANURIA [None]
  - ILEUS [None]
